FAERS Safety Report 10182331 (Version 1)
Quarter: 2014Q2

REPORT INFORMATION
  Report Type: Spontaneous
  Country: US (occurrence: None)
  Receive Date: 20140519
  Receipt Date: 20140519
  Transmission Date: 20141212
  Serious: No
  Sender: FDA-Public Use
  Company Number: None

PATIENT
  Age: 66 Year
  Sex: Female
  Weight: 70.31 kg

DRUGS (3)
  1. FENTANYL [Suspect]
     Indication: PAIN
     Dosage: 50MCG?1 PATCH?EVERY 3RD DAY A CHANGE OF PATCH ?ON THE SKIN
     Route: 061
     Dates: start: 20140429, end: 20140506
  2. BP MEDICATION [Concomitant]
  3. ANAFRANIL [Concomitant]

REACTIONS (6)
  - Feeling abnormal [None]
  - Hallucination [None]
  - Paresis [None]
  - Muscle twitching [None]
  - Tremor [None]
  - Hypersomnia [None]
